FAERS Safety Report 6713616-4 (Version None)
Quarter: 2010Q2

REPORT INFORMATION
  Report Type: 
  Country: None (occurrence: None)
  Receive Date: 20100506
  Receipt Date: 20100429
  Transmission Date: 20101027
  Serious: Yes (Other)
  Sender: FDA-Public Use
  Company Number: A0857305A

PATIENT
  Age: 55 Year
  Sex: Female

DRUGS (5)
  1. LAMICTAL [Suspect]
     Indication: BIPOLAR DISORDER
     Dosage: 200MG PER DAY
     Route: 048
     Dates: start: 20071201
  2. LEXAPRO [Concomitant]
  3. TRIAMCINOLONE ACETONIDE [Concomitant]
  4. AMLODIPINE [Concomitant]
  5. BENICAR HCT [Concomitant]

REACTIONS (5)
  - ERYTHEMA [None]
  - PSORIASIS [None]
  - RASH [None]
  - STOMATITIS [None]
  - SYSTEMIC LUPUS ERYTHEMATOSUS [None]
